FAERS Safety Report 14709860 (Version 1)
Quarter: 2018Q2

REPORT INFORMATION
  Report Type: Spontaneous
  Country: GB (occurrence: GB)
  Receive Date: 20180403
  Receipt Date: 20180403
  Transmission Date: 20180711
  Serious: Yes (Hospitalization)
  Sender: FDA-Public Use
  Company Number: GB-BIOGEN-2018BI00548416

PATIENT
  Age: 58 Year
  Sex: Male

DRUGS (1)
  1. PLEGRIDY [Suspect]
     Active Substance: PEGINTERFERON BETA-1A
     Indication: MULTIPLE SCLEROSIS
     Dosage: 0.5 ML
     Route: 058
     Dates: start: 20050714

REACTIONS (4)
  - Syncope [Unknown]
  - Body temperature increased [Unknown]
  - Accidental overdose [Unknown]
  - Gait inability [Unknown]

NARRATIVE: CASE EVENT DATE: 201803
